FAERS Safety Report 7512155-0 (Version None)
Quarter: 2011Q2

REPORT INFORMATION
  Report Type: 
  Country: None (occurrence: None)
  Receive Date: 20110531
  Receipt Date: 20110517
  Transmission Date: 20111010
  Serious: Yes (Other)
  Sender: FDA-Public Use
  Company Number: CA-JNJFOC-20100901613

PATIENT
  Sex: Male

DRUGS (3)
  1. REMICADE [Suspect]
     Indication: CROHN'S DISEASE
     Route: 042
     Dates: start: 20110314
  2. REMICADE [Suspect]
     Route: 042
     Dates: start: 20070701
  3. REMICADE [Suspect]
     Route: 042
     Dates: start: 20101028

REACTIONS (4)
  - PYREXIA [None]
  - EXOSTOSIS [None]
  - GOITRE [None]
  - ROTATOR CUFF SYNDROME [None]
